FAERS Safety Report 8304627-6 (Version None)
Quarter: 2012Q2

REPORT INFORMATION
  Report Type: 
  Country: None (occurrence: None)
  Receive Date: 20120423
  Receipt Date: 20120412
  Transmission Date: 20120825
  Serious: Yes (Hospitalization)
  Sender: FDA-Public Use
  Company Number: US-JNJFOC-20120406890

PATIENT
  Sex: Male

DRUGS (19)
  1. RISPERDAL [Suspect]
     Dosage: BEGAN 15 YEARS AGO ON AN UNSPECIFIED DATE IN 1997
     Route: 065
  2. CHLORPROMAZINE [Suspect]
     Indication: HALLUCINATION
     Route: 065
  3. LEVOTHYROXINE SODIUM [Concomitant]
     Indication: DECREASED ACTIVITY
     Route: 065
  4. DEPAKOTE [Concomitant]
     Indication: CONVULSION
     Route: 065
  5. RISPERDAL [Suspect]
     Route: 065
     Dates: start: 20110101
  6. RISPERDAL CONSTA [Suspect]
     Indication: PRODUCT USED FOR UNKNOWN INDICATION
     Route: 030
  7. DIPHENHYDRAMINE HCL [Concomitant]
     Indication: PARKINSONISM
     Route: 065
  8. FLUVOXAMINE MALEATE [Concomitant]
     Indication: AFFECTIVE DISORDER
     Route: 065
  9. PAXIL [Concomitant]
     Indication: AFFECTIVE DISORDER
     Route: 065
  10. INVEGA [Suspect]
     Indication: PRODUCT USED FOR UNKNOWN INDICATION
     Route: 048
     Dates: start: 20050101, end: 20110101
  11. RISPERDAL [Suspect]
     Indication: HALLUCINATION
     Dosage: BEGAN 15 YEARS AGO ON AN UNSPECIFIED DATE IN 1997
     Route: 065
  12. RISPERDAL CONSTA [Suspect]
     Route: 030
  13. CHLORPROMAZINE [Suspect]
     Indication: SCHIZOPHRENIA
     Route: 065
  14. BENZTROPINE MESYLATE [Concomitant]
     Indication: MUSCULOSKELETAL STIFFNESS
     Route: 065
  15. BENZTROPINE MESYLATE [Concomitant]
     Indication: TREMOR
     Route: 065
  16. RISPERDAL [Suspect]
     Route: 065
     Dates: start: 20110101
  17. RISPERDAL [Suspect]
     Indication: SCHIZOPHRENIA
     Route: 065
     Dates: start: 20110101
  18. LORAZEPAM [Concomitant]
     Indication: SCHIZOPHRENIA
     Route: 065
  19. RISPERDAL [Suspect]
     Indication: AUTISM
     Dosage: BEGAN 15 YEARS AGO ON AN UNSPECIFIED DATE IN 1997
     Route: 065

REACTIONS (4)
  - CATARACT [None]
  - SQUAMOUS CELL CARCINOMA OF SKIN [None]
  - DRUG INEFFECTIVE [None]
  - ADVERSE DRUG REACTION [None]
